FAERS Safety Report 5127636-7 (Version None)
Quarter: 2006Q4

REPORT INFORMATION
  Report Type: 
  Country: None (occurrence: None)
  Receive Date: 20061011
  Receipt Date: 20060927
  Transmission Date: 20070319
  Serious: Yes (Death, Other)
  Sender: FDA-Public Use
  Company Number: GXKR2006DE06007

PATIENT
  Age: 90 Year
  Sex: Female

DRUGS (1)
  1. DIPHENHYDRAMINE HYDROCHLORIDE (NGX) (DIPHENHYDRAMINE) [Suspect]
     Dosage: ORAL
     Route: 048

REACTIONS (4)
  - ASPIRATION [None]
  - DRUG ABUSER [None]
  - DRUG LEVEL INCREASED [None]
  - INJURY ASPHYXIATION [None]
